FAERS Safety Report 7156679-7 (Version None)
Quarter: 2010Q4

REPORT INFORMATION
  Report Type: 
  Country: None (occurrence: None)
  Receive Date: 20101214
  Receipt Date: 20100216
  Transmission Date: 20110411
  Serious: Yes (Other)
  Sender: FDA-Public Use
  Company Number: US-ASTRAZENECA-2009SE28756

PATIENT
  Age: 47 Year
  Sex: Female
  Weight: 78.5 kg

DRUGS (1)
  1. CRESTOR [Suspect]
     Route: 048

REACTIONS (1)
  - PAIN IN EXTREMITY [None]
